FAERS Safety Report 5138348-8 (Version None)
Quarter: 2006Q4

REPORT INFORMATION
  Report Type: 
  Country: None (occurrence: None)
  Receive Date: 20061030
  Receipt Date: 20060831
  Transmission Date: 20070319
  Serious: No
  Sender: FDA-Public Use
  Company Number: US-GLAXOSMITHKLINE-A0618767A

PATIENT
  Sex: Male

DRUGS (21)
  1. ADVAIR HFA [Suspect]
     Indication: CHRONIC OBSTRUCTIVE PULMONARY DISEASE
     Dosage: 1PUFF TWICE PER DAY
     Route: 055
  2. SPIRIVA [Concomitant]
  3. COLESTIPOL HCL [Concomitant]
  4. ATENOLOL [Concomitant]
  5. LISINOPRIL [Concomitant]
  6. WELLBUTRIN [Concomitant]
  7. KLONOPIN [Concomitant]
  8. ASPIRIN [Concomitant]
  9. NIACIN [Concomitant]
  10. ZOCOR [Concomitant]
  11. FOLIC ACID [Concomitant]
  12. THIAMINE [Concomitant]
  13. ASCORBIC ACID [Concomitant]
  14. MULTI-VITAMIN [Concomitant]
  15. FOSAMAX [Concomitant]
     Indication: OSTEOPOROSIS
  16. COQ10 [Concomitant]
  17. FISH OIL [Concomitant]
  18. OMEPRAZOLE [Concomitant]
  19. CALCIUM GLUCONATE [Concomitant]
  20. VITAMIN D [Concomitant]
  21. UNKNOWN MEDICATION [Concomitant]

REACTIONS (1)
  - BONE DENSITY DECREASED [None]
